FAERS Safety Report 8219365-8 (Version None)
Quarter: 2012Q1

REPORT INFORMATION
  Report Type: 
  Country: None (occurrence: None)
  Receive Date: 20120319
  Receipt Date: 20120305
  Transmission Date: 20120608
  Serious: Yes (Other)
  Sender: FDA-Public Use
  Company Number: BD-ASTELLAS-2012US001522

PATIENT
  Age: 22 Year
  Sex: Female
  Weight: 48 kg

DRUGS (2)
  1. AMBISOME [Suspect]
     Indication: VISCERAL LEISHMANIASIS
     Dosage: 240 MG, UNKNOWN/D
     Route: 065
     Dates: start: 20110727
  2. AMBISOME [Suspect]
     Dosage: UNK
     Route: 065

REACTIONS (2)
  - RHABDOMYOLYSIS [None]
  - TREATMENT FAILURE [None]
